FAERS Safety Report 17051685 (Version 3)
Quarter: 2020Q2

REPORT INFORMATION
  Report Type: Spontaneous
  Country: US (occurrence: US)
  Receive Date: 20191120
  Receipt Date: 20200423
  Transmission Date: 20200713
  Serious: Yes (Disabling)
  Sender: FDA-Public Use
  Company Number: US-AUROBINDO-AUR-APL-2019-072631

PATIENT
  Age: 56 Year
  Sex: Female
  Weight: 109 kg

DRUGS (4)
  1. DETROL [Suspect]
     Active Substance: TOLTERODINE TARTRATE
     Indication: HYPERTONIC BLADDER
     Dosage: 2 MILLIGRAM, TWO TIMES A DAY
     Route: 048
  2. CITALOPRAM [Suspect]
     Active Substance: CITALOPRAM HYDROBROMIDE
     Indication: DEPRESSION
     Dosage: 20 MILLIGRAM, UNK, SINCE 3 AND HALF YEARS
     Route: 065
  3. CITALOPRAM [Suspect]
     Active Substance: CITALOPRAM HYDROBROMIDE
     Indication: ANXIETY
  4. VALSARTAN. [Concomitant]
     Active Substance: VALSARTAN
     Indication: BLOOD PRESSURE MEASUREMENT
     Dosage: 80 MILLIGRAM, ONCE A DAY
     Route: 065

REACTIONS (5)
  - Product dose omission [Unknown]
  - Physical disability [Unknown]
  - Product prescribing error [Unknown]
  - Vulvovaginal mycotic infection [Unknown]
  - Urinary incontinence [Unknown]
